FAERS Safety Report 8670853 (Version 3)
Quarter: 2013Q4

REPORT INFORMATION
  Report Type: Spontaneous
  Country: US (occurrence: None)
  Receive Date: 20120629
  Receipt Date: 20131003
  Transmission Date: 20140711
  Serious: Yes (Disabling, Other)
  Sender: FDA-Public Use
  Company Number: ACO_30777_2012

PATIENT
  Age: 58 Year
  Sex: Female
  Weight: 55.8 kg

DRUGS (12)
  1. AMPYRA [Suspect]
     Indication: MULTIPLE SCLEROSIS
     Dosage: 10 MG, BID, ORAL
     Route: 048
     Dates: start: 20120514
  2. SONATA /00061001/ (CARISOPRODOL) [Concomitant]
  3. AVONEX [Concomitant]
  4. LEXAPRO [Concomitant]
  5. PROVIGIL [Concomitant]
  6. TOPROL XL [Concomitant]
  7. NORVASC [Concomitant]
  8. CHLORTHALIDONE [Concomitant]
  9. LISINOPRIL (LISINOPRIL) [Concomitant]
  10. LISINOPRIL HCTZ (HYDROCHLOROTHIAZIDE, LISINOPRIL) [Concomitant]
  11. OMEGA 3-6-9 (FISH OIL, TOCOPHEROL) [Concomitant]
  12. EDARBI (AZILSARTAN MEDOXOMIL) [Concomitant]

REACTIONS (9)
  - Abasia [None]
  - Dehydration [None]
  - Dizziness [None]
  - Decreased appetite [None]
  - Weight decreased [None]
  - Fluid intake reduced [None]
  - Blood potassium decreased [None]
  - Blood pressure increased [None]
  - Gait disturbance [None]
